FAERS Safety Report 4315881-X (Version None)
Quarter: 2004Q1

REPORT INFORMATION
  Report Type: 
  Country: None (occurrence: None)
  Receive Date: 20040310
  Receipt Date: 20040218
  Transmission Date: 20041129
  Serious: No
  Sender: FDA-Public Use
  Company Number: 2004S1000036

PATIENT
  Age: 35 Year
  Sex: Male
  Weight: 91 kg

DRUGS (2)
  1. CUBICIN [Suspect]
     Indication: PYODERMA
     Dosage: 4 MG/KG;QD;IV
     Route: 042
     Dates: start: 20040220
  2. VANCOMYCIN HYDROCHLORIDE [Concomitant]

REACTIONS (3)
  - CHEST DISCOMFORT [None]
  - CHEST PAIN [None]
  - PARAESTHESIA [None]
